FAERS Safety Report 19276945 (Version 1)
Quarter: 2021Q2

REPORT INFORMATION
  Report Type: Report from Study
  Country: FR (occurrence: FR)
  Receive Date: 20210519
  Receipt Date: 20210519
  Transmission Date: 20210717
  Serious: Yes (Hospitalization)
  Sender: FDA-Public Use
  Company Number: FR-ELI_LILLY_AND_COMPANY-FR202105007730

PATIENT
  Age: 61 Year
  Sex: Male
  Weight: 83 kg

DRUGS (5)
  1. ETESEVIMAB. [Suspect]
     Active Substance: ETESEVIMAB
     Indication: COVID-19
     Dosage: 1400 MG, SINGLE
     Route: 042
     Dates: start: 20210408, end: 20210408
  2. BAMLANIVIMAB. [Suspect]
     Active Substance: BAMLANIVIMAB
     Indication: COVID-19
     Dosage: 700 MG, SINGLE
     Route: 042
     Dates: start: 20210408, end: 20210408
  3. IMUREL [AZATHIOPRINE] [Concomitant]
     Active Substance: AZATHIOPRINE
     Indication: PRODUCT USED FOR UNKNOWN INDICATION
     Dosage: UNK, EACH MORNING
     Route: 065
  4. POLYCLONAL HYPERIMMUNE GLOBULIN COVID?19 (INVESTIGATIONAL PRODUCT) [Suspect]
     Active Substance: INVESTIGATIONAL PRODUCT
     Indication: PROPHYLAXIS
     Dosage: UNK, UNKNOWN
     Route: 065
     Dates: start: 20210412
  5. LOVENOX [Concomitant]
     Active Substance: ENOXAPARIN SODIUM
     Indication: PRODUCT USED FOR UNKNOWN INDICATION
     Dosage: 0.4 ML, DAILY
     Route: 065

REACTIONS (7)
  - Pyrexia [Recovered/Resolved]
  - Asthenia [Unknown]
  - Pulmonary interstitial emphysema syndrome [Unknown]
  - Decreased appetite [Unknown]
  - Anxiety [Unknown]
  - Prostatitis [Unknown]
  - Deep vein thrombosis [Unknown]

NARRATIVE: CASE EVENT DATE: 202104
